FAERS Safety Report 25360614 (Version 4)
Quarter: 2025Q3

REPORT INFORMATION
  Report Type: Report from Study
  Country: AR (occurrence: AR)
  Receive Date: 20250527
  Receipt Date: 20250714
  Transmission Date: 20251020
  Serious: Yes (Hospitalization)
  Sender: JOHNSON AND JOHNSON
  Company Number: AR-JNJFOC-20250526409

PATIENT
  Age: 74 Year
  Sex: Female
  Weight: 75 kg

DRUGS (2)
  1. SIMPONI [Suspect]
     Active Substance: GOLIMUMAB
     Indication: Rheumatoid arthritis
     Route: 058
     Dates: start: 20230325
  2. SIMPONI [Suspect]
     Active Substance: GOLIMUMAB
     Route: 058
     Dates: start: 20250325

REACTIONS (5)
  - Loss of consciousness [Recovered/Resolved]
  - Head injury [Recovering/Resolving]
  - Pain [Unknown]
  - Influenza [Recovered/Resolved with Sequelae]
  - Muscle mass [Unknown]

NARRATIVE: CASE EVENT DATE: 20250514
